FAERS Safety Report 21412977 (Version 1)
Quarter: 2022Q4

REPORT INFORMATION
  Report Type: Spontaneous
  Country: CA (occurrence: CA)
  Receive Date: 20221005
  Receipt Date: 20221005
  Transmission Date: 20230113
  Serious: Yes (Other)
  Sender: FDA-Public Use
  Company Number: CA-ADVANZ PHARMA-202209006386

PATIENT
  Age: 64 Year
  Sex: Male

DRUGS (2)
  1. OCALIVA [Suspect]
     Active Substance: OBETICHOLIC ACID
     Indication: Primary biliary cholangitis
     Dosage: 5 MG, QD
     Dates: start: 20220421
  2. URSODIOL [Concomitant]
     Active Substance: URSODIOL
     Dosage: 1000 MG, QD
     Dates: start: 20200401

REACTIONS (2)
  - Oesophageal varices haemorrhage [Unknown]
  - Hepatic failure [Unknown]
